FAERS Safety Report 8044021-9 (Version None)
Quarter: 2011Q4

REPORT INFORMATION
  Report Type: 
  Country: None (occurrence: None)
  Receive Date: 20111202
  Receipt Date: 20110301
  Transmission Date: 20120403
  Serious: Yes (Other)
  Sender: FDA-Public Use
  Company Number: WAES 1007USA01837

PATIENT
  Age: 53 Year
  Sex: Female
  Weight: 63.5036 kg

DRUGS (7)
  1. ZETIA [Concomitant]
  2. FOSAMAX [Suspect]
     Indication: OSTEOPENIA
     Dosage: 5 MG/DAILY/PO
     Route: 048
     Dates: start: 19990929
  3. FOSAMAX [Suspect]
     Indication: OSTEOPENIA
     Dosage: 70 MG/WKY/PO ; 70 MG/WKY/PO
     Route: 048
     Dates: start: 20010513, end: 20020202
  4. FOSAMAX [Suspect]
     Indication: OSTEOPENIA
     Dosage: 70 MG/WKY/PO ; 70 MG/WKY/PO
     Route: 048
     Dates: start: 20040520, end: 20080620
  5. CELEXA [Concomitant]
  6. HORMONES (UNSPECIFIED) [Concomitant]
  7. ADDERALL TABLETS [Concomitant]

REACTIONS (17)
  - PAIN IN EXTREMITY [None]
  - OVARIAN CYST [None]
  - OSTEONECROSIS OF JAW [None]
  - ANXIETY [None]
  - EXTREMITY CONTRACTURE [None]
  - SINUSITIS [None]
  - BLOOD DISORDER [None]
  - TOOTH FRACTURE [None]
  - FALL [None]
  - ARTHRALGIA [None]
  - FRACTURE DELAYED UNION [None]
  - ORAL HERPES [None]
  - BREAST DISORDER [None]
  - THERMAL BURN [None]
  - VIRAL PHARYNGITIS [None]
  - FOOT FRACTURE [None]
  - BREAST CYST [None]
